FAERS Safety Report 21747838 (Version 2)
Quarter: 2023Q1

REPORT INFORMATION
  Report Type: Spontaneous
  Country: US (occurrence: US)
  Receive Date: 20221219
  Receipt Date: 20230320
  Transmission Date: 20230417
  Serious: No
  Sender: FDA-Public Use
  Company Number: US-SA-SAC20221215000860

PATIENT
  Sex: Female

DRUGS (10)
  1. DUPIXENT [Suspect]
     Active Substance: DUPILUMAB
     Indication: Dermatitis atopic
     Dosage: 300 MG, QOW
     Route: 058
  2. KEYTRUDA [Suspect]
     Active Substance: PEMBROLIZUMAB
     Dosage: UNK
  3. AMLODIPINE [Concomitant]
     Active Substance: AMLODIPINE BESYLATE
  4. CLOBETASOL [Concomitant]
     Active Substance: CLOBETASOL
  5. GABAPENTIN [Concomitant]
     Active Substance: GABAPENTIN
  6. KEPPRA [Concomitant]
     Active Substance: LEVETIRACETAM
  7. LEXAPRO [Concomitant]
     Active Substance: ESCITALOPRAM OXALATE
     Dosage: 10MG
  8. CARVEDILOL [Concomitant]
     Active Substance: CARVEDILOL
  9. ROSUVASTATIN [Concomitant]
     Active Substance: ROSUVASTATIN
  10. MEDROL [Concomitant]
     Active Substance: METHYLPREDNISOLONE

REACTIONS (3)
  - Rash [Unknown]
  - Inappropriate schedule of product administration [Unknown]
  - Drug ineffective [Unknown]
